FAERS Safety Report 20257497 (Version 2)
Quarter: 2022Q1

REPORT INFORMATION
  Report Type: Report from Study
  Country: IT (occurrence: None)
  Receive Date: 20211230
  Receipt Date: 20220302
  Transmission Date: 20220423
  Serious: Yes (Hospitalization)
  Sender: FDA-Public Use
  Company Number: IT-ROCHE-2956324

PATIENT
  Age: 45 Year
  Sex: Female
  Weight: 58 kg

DRUGS (22)
  1. OBINUTUZUMAB [Suspect]
     Active Substance: OBINUTUZUMAB
     Indication: Non-Hodgkin^s lymphoma
     Route: 042
     Dates: start: 20211022
  2. GLOFITAMAB [Suspect]
     Active Substance: GLOFITAMAB
     Indication: Non-Hodgkin^s lymphoma
     Dosage: DOSE LAST STUDY DRUG ADMIN PRIOR AE IS 2.5 MGDOSE LAST STUDY DRUG ADMIN PRIOR SAE IS 2.5 MG
     Route: 058
     Dates: start: 20211104
  3. TOCILIZUMAB [Suspect]
     Active Substance: TOCILIZUMAB
     Indication: Non-Hodgkin^s lymphoma
     Route: 042
     Dates: start: 20211105
  4. BACTRIM [Concomitant]
     Active Substance: SULFAMETHOXAZOLE\TRIMETHOPRIM
     Indication: Prophylaxis
     Route: 048
     Dates: start: 202101
  5. ACYCLOVIR [Concomitant]
     Active Substance: ACYCLOVIR
     Indication: Prophylaxis
     Route: 048
     Dates: start: 202101
  6. TRAMADOL [Concomitant]
     Active Substance: TRAMADOL
     Route: 048
  7. NADROPARIN CALCIUM [Concomitant]
     Active Substance: NADROPARIN CALCIUM
     Dosage: 1 OTHER
     Route: 058
     Dates: start: 202108
  8. NALOXONE HYDROCHLORIDE\OXYCODONE HYDROCHLORIDE [Concomitant]
     Active Substance: NALOXONE HYDROCHLORIDE\OXYCODONE HYDROCHLORIDE
     Route: 048
     Dates: start: 20211001
  9. FILGRASTIM [Concomitant]
     Active Substance: FILGRASTIM
     Indication: Neutropenia
     Dosage: 1 OTHER
     Route: 058
     Dates: start: 20211024, end: 20211028
  10. OXYGEN [Concomitant]
     Active Substance: OXYGEN
     Indication: Hypoxia
  11. VASOPRESSIN [Concomitant]
     Active Substance: VASOPRESSIN
     Indication: Hypotension
  12. DEXAMETHASONE [Concomitant]
     Active Substance: DEXAMETHASONE
     Indication: Unevaluable event
     Route: 042
     Dates: start: 20211022, end: 20211022
  13. DEXAMETHASONE [Concomitant]
     Active Substance: DEXAMETHASONE
     Route: 042
     Dates: start: 20211104, end: 20211104
  14. DEXAMETHASONE [Concomitant]
     Active Substance: DEXAMETHASONE
     Route: 042
     Dates: start: 20211105, end: 20211109
  15. CHLORPHENIRAMINE MALEATE [Concomitant]
     Active Substance: CHLORPHENIRAMINE MALEATE
     Route: 042
     Dates: start: 20211022, end: 20211022
  16. CHLORPHENIRAMINE MALEATE [Concomitant]
     Active Substance: CHLORPHENIRAMINE MALEATE
     Route: 042
     Dates: start: 20211104, end: 20211104
  17. ACETAMINOPHEN [Concomitant]
     Active Substance: ACETAMINOPHEN
     Route: 048
     Dates: start: 20211022, end: 20211022
  18. ACETAMINOPHEN [Concomitant]
     Active Substance: ACETAMINOPHEN
     Route: 048
     Dates: start: 20211104, end: 20211104
  19. IBUPROFEN [Concomitant]
     Active Substance: IBUPROFEN
     Route: 042
     Dates: start: 20211105, end: 20211105
  20. HYDROCORTISONE [Concomitant]
     Active Substance: HYDROCORTISONE
     Indication: Unevaluable event
     Route: 042
     Dates: start: 20211105, end: 20211105
  21. RINGER ACETATO [Concomitant]
     Route: 042
     Dates: start: 20211105, end: 20211109
  22. MORPHINE [Concomitant]
     Active Substance: MORPHINE

REACTIONS (1)
  - Pneumonitis [Not Recovered/Not Resolved]

NARRATIVE: CASE EVENT DATE: 20211109
